FAERS Safety Report 15670876 (Version 1)
Quarter: 2018Q4

REPORT INFORMATION
  Report Type: Spontaneous
  Country: DE (occurrence: DE)
  Receive Date: 20181129
  Receipt Date: 20181129
  Transmission Date: 20190205
  Serious: No
  Sender: FDA-Public Use
  Company Number: DE-NODEN PHARMA DAC-NOD-2017-000118

PATIENT
  Sex: Female

DRUGS (1)
  1. RASILEZ [Suspect]
     Active Substance: ALISKIREN
     Indication: BLOOD PRESSURE MANAGEMENT
     Dosage: 150 MG, QD, FOR YEARS
     Route: 065

REACTIONS (1)
  - Head discomfort [Unknown]
